FAERS Safety Report 6612308-X (Version None)
Quarter: 2010Q1

REPORT INFORMATION
  Report Type: 
  Country: None (occurrence: None)
  Receive Date: 20100302
  Receipt Date: 20100302
  Transmission Date: 20100710
  Serious: Yes (Disabling, Other)
  Sender: FDA-Public Use
  Company Number: None

PATIENT
  Age: 30 Year
  Sex: Male
  Weight: 124.7392 kg

DRUGS (1)
  1. RISPERIDONE 4 MG PATRIOT PHARMACEUTICALS [Suspect]
     Indication: BIPOLAR DISORDER
     Dosage: 4 MG TWICE DAILY PO
     Route: 048
     Dates: start: 20090131, end: 20091201

REACTIONS (5)
  - BLOOD TESTOSTERONE DECREASED [None]
  - BLOOD TESTOSTERONE INCREASED [None]
  - ERECTILE DYSFUNCTION [None]
  - HYPERPROLACTINAEMIA [None]
  - LOSS OF LIBIDO [None]
